FAERS Safety Report 4759976-5 (Version None)
Quarter: 2005Q3

REPORT INFORMATION
  Report Type: 
  Country: None (occurrence: None)
  Receive Date: 20050902
  Receipt Date: 20050826
  Transmission Date: 20060218
  Serious: Yes (Hospitalization)
  Sender: FDA-Public Use
  Company Number: FI-ABBOTT-05P-055-0309547-00

PATIENT
  Age: 29 Year
  Sex: Female

DRUGS (6)
  1. VALPROATE SODIUM [Suspect]
     Indication: EPILEPSY
     Route: 048
  2. CARBAMAZEPINE [Suspect]
     Indication: EPILEPSY
     Route: 065
  3. CARBAMAZEPINE [Suspect]
     Route: 065
  4. VIGABATRIN [Suspect]
     Indication: EPILEPSY
     Route: 065
  5. VIGABATRIN [Suspect]
  6. FOLIC ACID [Concomitant]
     Indication: EPILEPSY
     Route: 065

REACTIONS (5)
  - AMBLYOPIA [None]
  - ANISOMETROPIA [None]
  - DRUG RESISTANCE [None]
  - STATUS EPILEPTICUS [None]
  - STRABISMUS [None]
